FAERS Safety Report 13492581 (Version 2)
Quarter: 2017Q2

REPORT INFORMATION
  Report Type: Spontaneous
  Country: IT (occurrence: IT)
  Receive Date: 20170427
  Receipt Date: 20170512
  Transmission Date: 20170830
  Serious: Yes (Death)
  Sender: FDA-Public Use
  Company Number: IT-SA-2017SA075478

PATIENT
  Age: 82 Year
  Sex: Female

DRUGS (4)
  1. SOLOSA [Suspect]
     Active Substance: GLIMEPIRIDE
     Route: 048
  2. LANOXIN [Suspect]
     Active Substance: DIGOXIN
     Dosage: STRENGTH: 0.125 MG
     Route: 048
  3. GLUCOPHAGE [Suspect]
     Active Substance: METFORMIN HYDROCHLORIDE
     Dosage: 850 MG COATED TABBLETS
     Route: 048
  4. LANSOPRAZOLE. [Suspect]
     Active Substance: LANSOPRAZOLE
     Dosage: STRENGTH: 15 MG
     Route: 048

REACTIONS (4)
  - Acute kidney injury [Fatal]
  - Respiratory distress [Fatal]
  - Sopor [Fatal]
  - Metabolic acidosis [Fatal]

NARRATIVE: CASE EVENT DATE: 20150725
